FAERS Safety Report 19171187 (Version 4)
Quarter: 2021Q2

REPORT INFORMATION
  Report Type: Report from Study
  Country: US (occurrence: US)
  Receive Date: 20210423
  Receipt Date: 20210603
  Transmission Date: 20210717
  Serious: Yes (Hospitalization)
  Sender: FDA-Public Use
  Company Number: US-JNJFOC-20210433763

PATIENT
  Age: 73 Year
  Sex: Female

DRUGS (2)
  1. MACITENTAN [Suspect]
     Active Substance: MACITENTAN
     Route: 048
     Dates: start: 20210323, end: 20210526
  2. MACITENTAN [Suspect]
     Active Substance: MACITENTAN
     Indication: PULMONARY ARTERIAL HYPERTENSION
     Route: 048
     Dates: start: 20210223

REACTIONS (4)
  - Generalised oedema [Unknown]
  - Hypersensitivity [Unknown]
  - Joint swelling [Not Recovered/Not Resolved]
  - Swelling face [Recovering/Resolving]

NARRATIVE: CASE EVENT DATE: 20210409
